FAERS Safety Report 26103049 (Version 1)
Quarter: 2025Q4

REPORT INFORMATION
  Report Type: Spontaneous
  Country: EU (occurrence: EU)
  Receive Date: 20251129
  Receipt Date: 20251129
  Transmission Date: 20260117
  Serious: Yes (Other)
  Sender: ACCORD
  Company Number: None

PATIENT
  Age: 80 Year
  Sex: Female

DRUGS (2)
  1. CARBOPLATIN [Suspect]
     Active Substance: CARBOPLATIN
     Indication: Ovarian cancer
     Dosage: 2ND TREATMENT
     Dates: start: 20240717
  2. CARBOPLATIN [Suspect]
     Active Substance: CARBOPLATIN
     Indication: Ovarian cancer
     Dosage: 3RD TREATMENT
     Dates: start: 20240808

REACTIONS (4)
  - Pruritus [Recovered/Resolved]
  - Malaise [Recovered/Resolved]
  - Throat irritation [Recovered/Resolved]
  - Abdominal pain [Recovered/Resolved]

NARRATIVE: CASE EVENT DATE: 20240717
